FAERS Safety Report 23429868 (Version 1)
Quarter: 2024Q1

REPORT INFORMATION
  Report Type: Report from Study
  Country: JP (occurrence: JP)
  Receive Date: 20240122
  Receipt Date: 20240122
  Transmission Date: 20240409
  Serious: Yes (Other)
  Sender: FDA-Public Use
  Company Number: JP-GLAXOSMITHKLINE-JP2024JPN008114

PATIENT

DRUGS (20)
  1. BELIMUMAB [Suspect]
     Active Substance: BELIMUMAB
     Indication: Systemic lupus erythematosus
     Dosage: 8.3 MG/KG (400MG)
     Route: 041
     Dates: start: 20230306, end: 20230306
  2. BELIMUMAB [Suspect]
     Active Substance: BELIMUMAB
     Indication: Lupus nephritis
     Dosage: 8.3 MG/KG (400MG)
     Route: 041
     Dates: start: 20230320, end: 20230320
  3. BELIMUMAB [Suspect]
     Active Substance: BELIMUMAB
     Dosage: 7.4 MG/KG (400MG)
     Route: 041
     Dates: start: 20230421, end: 20230421
  4. BELIMUMAB [Suspect]
     Active Substance: BELIMUMAB
     Dosage: 7.4 MG/KG (400MG)
     Route: 041
     Dates: start: 20230523, end: 20230523
  5. BELIMUMAB [Suspect]
     Active Substance: BELIMUMAB
     Dosage: 7.4 MG/KG (400MG)
     Route: 041
     Dates: start: 20230620, end: 20230620
  6. BELIMUMAB [Suspect]
     Active Substance: BELIMUMAB
     Dosage: 7.4 MG/KG (400MG)
     Route: 041
     Dates: start: 20230714, end: 20230714
  7. BELIMUMAB [Suspect]
     Active Substance: BELIMUMAB
     Dosage: 7.4 MG/KG (400MG)
     Route: 041
     Dates: start: 20230816, end: 20230816
  8. PREDONINE [Suspect]
     Active Substance: PREDNISOLONE
     Indication: Systemic lupus erythematosus
     Dosage: 50 MG, QD
     Route: 048
     Dates: end: 20230309
  9. PREDONINE [Suspect]
     Active Substance: PREDNISOLONE
     Indication: Lupus nephritis
     Dosage: 45 MG, QD
     Route: 048
     Dates: start: 20230310, end: 20230316
  10. PREDONINE [Suspect]
     Active Substance: PREDNISOLONE
     Dosage: 40 MG, QD
     Route: 048
     Dates: start: 20230317, end: 20230323
  11. PREDONINE [Suspect]
     Active Substance: PREDNISOLONE
     Dosage: 35 MG, QD
     Route: 048
     Dates: start: 20230324, end: 20230330
  12. PREDONINE [Suspect]
     Active Substance: PREDNISOLONE
     Dosage: 30 MG, QD
     Route: 048
     Dates: start: 20230331, end: 20230406
  13. PREDONINE [Suspect]
     Active Substance: PREDNISOLONE
     Dosage: 25 MG, QD
     Route: 048
     Dates: start: 20230407, end: 20230619
  14. PREDONINE [Suspect]
     Active Substance: PREDNISOLONE
     Dosage: 23 MG, QD
     Route: 048
     Dates: start: 20230620, end: 20230815
  15. PREDONINE [Suspect]
     Active Substance: PREDNISOLONE
     Dosage: 20 MG, QD
     Route: 048
     Dates: start: 20230816
  16. CELLCEPT [Suspect]
     Active Substance: MYCOPHENOLATE MOFETIL
     Indication: Systemic lupus erythematosus
     Dosage: UNK
  17. CELLCEPT [Suspect]
     Active Substance: MYCOPHENOLATE MOFETIL
     Indication: Lupus nephritis
  18. PLAQUENIL [Concomitant]
     Active Substance: HYDROXYCHLOROQUINE SULFATE
     Indication: Systemic lupus erythematosus
     Dosage: UNK
  19. PLAQUENIL [Concomitant]
     Active Substance: HYDROXYCHLOROQUINE SULFATE
     Indication: Lupus nephritis
  20. FAMOTIDINE [Concomitant]
     Active Substance: FAMOTIDINE
     Indication: Prophylaxis against gastrointestinal ulcer
     Dosage: UNK

REACTIONS (5)
  - Hypogammaglobulinaemia [Not Recovered/Not Resolved]
  - Glaucoma [Recovered/Resolved]
  - Intraocular pressure increased [Recovered/Resolved]
  - Prescribed underdose [Unknown]
  - Inappropriate schedule of product administration [Unknown]

NARRATIVE: CASE EVENT DATE: 20230306
